FAERS Safety Report 10143443 (Version 2)
Quarter: 2014Q2

REPORT INFORMATION
  Report Type: Spontaneous
  Country: JP (occurrence: JP)
  Receive Date: 20140430
  Receipt Date: 20140430
  Transmission Date: 20141212
  Serious: Yes (Life-Threatening, Hospitalization, Other)
  Sender: FDA-Public Use
  Company Number: JP-TAKEDA-THQ2012A11181

PATIENT
  Age: 41 Year
  Sex: Male
  Weight: 70 kg

DRUGS (15)
  1. TAKEPRON OD TABLETS 15 [Suspect]
     Indication: PROPHYLAXIS AGAINST GASTROINTESTINAL ULCER
     Dosage: 15 MG, QD
     Route: 048
     Dates: start: 20121130
  2. LEXAPRO [Interacting]
     Indication: DEPRESSION
     Dosage: 10 MG, QD
     Route: 048
     Dates: end: 20121129
  3. LEXAPRO [Interacting]
     Indication: AFFECT LABILITY
     Dosage: 10 MG, QD
     Route: 048
     Dates: start: 20121203, end: 20121203
  4. LAMICTAL [Concomitant]
     Indication: DEPRESSION
     Dosage: 50 MG, BID
     Route: 048
     Dates: end: 20121129
  5. LANDSEN [Concomitant]
     Indication: DEPRESSION
     Dosage: 0.5 MG, QD
     Route: 048
     Dates: end: 20121129
  6. RIVOTRIL [Concomitant]
     Indication: DEPRESSION
     Dosage: 0.5 MG, QD
     Route: 048
     Dates: start: 20121203, end: 20121203
  7. PLAVIX [Concomitant]
     Indication: ACUTE MYOCARDIAL INFARCTION
     Dosage: 75 MG, QD
     Route: 048
     Dates: start: 20121130
  8. BAYASPIRIN [Concomitant]
     Indication: ACUTE MYOCARDIAL INFARCTION
     Dosage: 100 MG, QD
     Route: 048
     Dates: start: 20121130
  9. CRESTOR [Concomitant]
     Indication: ACUTE MYOCARDIAL INFARCTION
     Dosage: 2.5 MG, QD
     Route: 048
     Dates: start: 20121130
  10. NICORANDIS [Concomitant]
     Indication: ACUTE MYOCARDIAL INFARCTION
     Dosage: 5 MG, TID
     Route: 048
     Dates: start: 20121130
  11. MAGNESIUM OXIDE [Concomitant]
     Indication: ACUTE MYOCARDIAL INFARCTION
     Dosage: 0.5 MG, TID
     Dates: start: 20121130
  12. SOLITA [Concomitant]
     Indication: ACUTE MYOCARDIAL INFARCTION
     Dosage: 500 ML, UNK
     Route: 041
     Dates: start: 20121130
  13. HEPARIN SODIUM [Concomitant]
     Indication: ACUTE MYOCARDIAL INFARCTION
     Dosage: 12 KIU, UNK
     Route: 041
     Dates: start: 20121130
  14. ACETYLSALICYLIC ACID [Concomitant]
     Indication: PRODUCT USED FOR UNKNOWN INDICATION
     Dosage: UNK
     Route: 048
  15. CLOPIDOGREL BISULFATE [Concomitant]
     Indication: PRODUCT USED FOR UNKNOWN INDICATION
     Dosage: UNK
     Route: 048

REACTIONS (4)
  - Torsade de pointes [Recovering/Resolving]
  - Ventricular fibrillation [Recovering/Resolving]
  - Apathy [Recovering/Resolving]
  - Drug interaction [Recovered/Resolved]
